FAERS Safety Report 6436222-8 (Version None)
Quarter: 2009Q4

REPORT INFORMATION
  Report Type: 
  Country: None (occurrence: None)
  Receive Date: 20091110
  Receipt Date: 20091110
  Transmission Date: 20100525
  Serious: Yes (Other)
  Sender: FDA-Public Use
  Company Number: None

PATIENT
  Age: 10 Year
  Sex: Female
  Weight: 58.0604 kg

DRUGS (4)
  1. RISPERIDONE [Suspect]
     Indication: ATTENTION DEFICIT/HYPERACTIVITY DISORDER
     Dosage: ONCE TID
     Dates: start: 20091001
  2. RISPERIDONE [Suspect]
     Indication: BIPOLAR I DISORDER
     Dosage: ONCE TID
     Dates: start: 20091001
  3. RISPERIDONE [Suspect]
     Indication: ATTENTION DEFICIT/HYPERACTIVITY DISORDER
     Dosage: ONCE TID
     Dates: start: 20091029
  4. RISPERIDONE [Suspect]
     Indication: BIPOLAR I DISORDER
     Dosage: ONCE TID
     Dates: start: 20091029

REACTIONS (3)
  - ANGER [None]
  - EMOTIONAL DISORDER [None]
  - PRODUCT SUBSTITUTION ISSUE [None]
